FAERS Safety Report 7244467-2 (Version None)
Quarter: 2011Q1

REPORT INFORMATION
  Report Type: 
  Country: None (occurrence: None)
  Receive Date: 20110125
  Receipt Date: 20110118
  Transmission Date: 20110831
  Serious: Yes (Other)
  Sender: FDA-Public Use
  Company Number: TH-PFIZER INC-2011013551

PATIENT
  Age: 33 Year
  Sex: Male
  Weight: 95 kg

DRUGS (1)
  1. NEURONTIN [Suspect]
     Dosage: 600 MG, UNK
     Route: 048

REACTIONS (4)
  - FAECAL INCONTINENCE [None]
  - DRUG DEPENDENCE [None]
  - URINARY INCONTINENCE [None]
  - DIARRHOEA [None]
